FAERS Safety Report 8943636 (Version 1)
Quarter: 2012Q4

REPORT INFORMATION
  Report Type: 
  Country: BR (occurrence: BR)
  Receive Date: 20121204
  Receipt Date: 20121204
  Transmission Date: 20130627
  Serious: Yes (Hospitalization)
  Sender: FDA-Public Use
  Company Number: BR-PFIZER INC-2012301919

PATIENT
  Age: 54 Year
  Sex: Male

DRUGS (5)
  1. ATENOLOL [Suspect]
     Indication: HYPERTENSION
     Dosage: 25 mg, 2x/day
     Route: 048
     Dates: start: 1999
  2. CRESTOR [Suspect]
     Indication: TRIGLYCERIDES HIGH
     Dosage: 10 mg, 1x/day
     Route: 048
     Dates: start: 2007, end: 2012
  3. CRESTOR [Suspect]
     Dosage: 20 mg, 1x/day
     Route: 048
     Dates: start: 2012
  4. ASPIRINE [Concomitant]
     Indication: TRIGLYCERIDES HIGH
     Dosage: UNK
     Route: 048
     Dates: start: 1999
  5. ZETIA [Concomitant]
     Indication: TRIGLYCERIDES HIGH
     Dosage: 1xday
     Route: 048
     Dates: start: 2007

REACTIONS (3)
  - Myocardial infarction [Recovered/Resolved]
  - Device occlusion [Recovered/Resolved]
  - Blood triglycerides increased [Unknown]
